FAERS Safety Report 8166559-6 (Version None)
Quarter: 2012Q1

REPORT INFORMATION
  Report Type: 
  Country: None (occurrence: None)
  Receive Date: 20120227
  Receipt Date: 20110923
  Transmission Date: 20120608
  Serious: Yes (Other)
  Sender: FDA-Public Use
  Company Number: US-BRISTOL-MYERS SQUIBB COMPANY-16092587

PATIENT
  Sex: Male

DRUGS (2)
  1. TAXOL [Suspect]
     Indication: NON-SMALL CELL LUNG CANCER
  2. GEMZAR [Suspect]
     Indication: NON-SMALL CELL LUNG CANCER

REACTIONS (2)
  - BLOOD CALCIUM INCREASED [None]
  - NEOPLASM MALIGNANT [None]
